FAERS Safety Report 9384549 (Version 1)
Quarter: 2013Q3

REPORT INFORMATION
  Report Type: Spontaneous
  Country: DK (occurrence: DK)
  Receive Date: 20130705
  Receipt Date: 20130705
  Transmission Date: 20140515
  Serious: Yes (Hospitalization, Other)
  Sender: FDA-Public Use
  Company Number: DK-AMGEN-DNKSP2013046212

PATIENT
  Age: 73 Year
  Sex: 0

DRUGS (1)
  1. PROLIA [Suspect]
     Indication: OSTEOPOROSIS
     Dosage: 60 MG/ML, Q6MO
     Dates: start: 2011, end: 20130613

REACTIONS (3)
  - Pneumonia [Recovered/Resolved]
  - Respiratory tract infection [Unknown]
  - Pain in extremity [Recovered/Resolved]
